FAERS Safety Report 8368871-4 (Version None)
Quarter: 2012Q2

REPORT INFORMATION
  Report Type: 
  Country: None (occurrence: None)
  Receive Date: 20120516
  Receipt Date: 20120507
  Transmission Date: 20120825
  Serious: Yes (Life-Threatening, Hospitalization, Other)
  Sender: FDA-Public Use
  Company Number: IMP_05885_2012

PATIENT
  Age: 36 Year
  Sex: Male

DRUGS (1)
  1. METFORMIN HCL [Suspect]
     Indication: TYPE 2 DIABETES MELLITUS
     Dosage: 45 G, 1X ORAL, DF
     Route: 048

REACTIONS (15)
  - ABDOMINAL PAIN [None]
  - HEPATIC ENZYME INCREASED [None]
  - HEART RATE INCREASED [None]
  - PANCREATITIS [None]
  - TACHYPNOEA [None]
  - METABOLIC ACIDOSIS [None]
  - CONTINUOUS HAEMODIAFILTRATION [None]
  - CARDIAC ARREST [None]
  - HAEMOLYTIC ANAEMIA [None]
  - VOMITING [None]
  - BLOOD LACTIC ACID INCREASED [None]
  - ANION GAP INCREASED [None]
  - SKIN WARM [None]
  - BLOOD GLUCOSE INCREASED [None]
  - PNEUMONIA ASPIRATION [None]
